FAERS Safety Report 13761071 (Version 2)
Quarter: 2017Q3

REPORT INFORMATION
  Report Type: Spontaneous
  Country: IE (occurrence: IE)
  Receive Date: 20170717
  Receipt Date: 20170730
  Transmission Date: 20171127
  Serious: Yes (Hospitalization)
  Sender: FDA-Public Use
  Company Number: IE-MYLANLABS-2017M1040632

PATIENT

DRUGS (1)
  1. CLOZARIL [Suspect]
     Active Substance: CLOZAPINE
     Indication: SCHIZOPHRENIA
     Dosage: UNK
     Route: 048
     Dates: start: 19961009, end: 20170703

REACTIONS (3)
  - Intestinal obstruction [Unknown]
  - Renal disorder [Recovering/Resolving]
  - Contraindication to medical treatment [Unknown]

NARRATIVE: CASE EVENT DATE: 2017
